FAERS Safety Report 6884973-3 (Version None)
Quarter: 2010Q3

REPORT INFORMATION
  Report Type: 
  Country: None (occurrence: None)
  Receive Date: 20100727
  Receipt Date: 20100712
  Transmission Date: 20110219
  Serious: Yes (Other)
  Sender: FDA-Public Use
  Company Number: 2010SP001291

PATIENT
  Age: 89 Year
  Sex: Female
  Weight: 63.5 kg

DRUGS (5)
  1. ALVESCO [Suspect]
     Indication: ASTHMA
     Dosage: QD; INHALATION
     Route: 055
     Dates: start: 20090101
  2. EYE DROPS [Concomitant]
  3. PRILOSEC [Concomitant]
  4. VITAMIN TAB [Concomitant]
  5. GINKGO BILOBA [Concomitant]

REACTIONS (6)
  - CONCUSSION [None]
  - CONTUSION [None]
  - DIZZINESS [None]
  - LOSS OF CONSCIOUSNESS [None]
  - ROAD TRAFFIC ACCIDENT [None]
  - WOUND [None]
